FAERS Safety Report 19670022 (Version 2)
Quarter: 2021Q3

REPORT INFORMATION
  Report Type: Report from Study
  Country: GB (occurrence: GB)
  Receive Date: 20210806
  Receipt Date: 20210824
  Transmission Date: 20211014
  Serious: Yes (Death)
  Sender: FDA-Public Use
  Company Number: GB-CELGENEUS-GBR-20210801056

PATIENT
  Sex: Male
  Weight: 102 kg

DRUGS (1)
  1. LENALIDOMIDE [Suspect]
     Active Substance: LENALIDOMIDE
     Indication: PLASMABLASTIC LYMPHOMA
     Dosage: 25 MILLIGRAM
     Route: 048
     Dates: start: 20210630, end: 20210720

REACTIONS (1)
  - Plasmablastic lymphoma [Fatal]

NARRATIVE: CASE EVENT DATE: 2021
